FAERS Safety Report 22138686 (Version 1)
Quarter: 2023Q1

REPORT INFORMATION
  Report Type: Spontaneous
  Country: IN (occurrence: IN)
  Receive Date: 20230326
  Receipt Date: 20230326
  Transmission Date: 20230417
  Serious: Yes (Other)
  Sender: FDA-Public Use
  Company Number: IN-SKF-000020

PATIENT
  Age: 21 Year
  Sex: Male

DRUGS (2)
  1. PREGABALIN [Suspect]
     Active Substance: PREGABALIN
     Indication: Fatigue
     Route: 048
  2. PREGABALIN [Suspect]
     Active Substance: PREGABALIN
     Indication: Fatigue
     Route: 048

REACTIONS (8)
  - Substance abuse [Unknown]
  - Withdrawal syndrome [Unknown]
  - Yawning [Unknown]
  - Lethargy [Unknown]
  - Depressed mood [Unknown]
  - Asocial behaviour [Unknown]
  - Off label use [Unknown]
  - Anxiety [Unknown]
